FAERS Safety Report 25104968 (Version 1)
Quarter: 2025Q1

REPORT INFORMATION
  Report Type: Spontaneous
  Country: US (occurrence: US)
  Receive Date: 20250321
  Receipt Date: 20250321
  Transmission Date: 20250408
  Serious: Yes (Hospitalization, Other)
  Sender: ALEXION PHARMACEUTICALS
  Company Number: US-AstraZeneca-CH-00828177A

PATIENT

DRUGS (2)
  1. SEROQUEL [Suspect]
     Active Substance: QUETIAPINE FUMARATE
     Dosage: 300 MILLIGRAM, BID
     Route: 065
  2. SEROQUEL [Suspect]
     Active Substance: QUETIAPINE FUMARATE
     Route: 065

REACTIONS (16)
  - Pneumonia [Unknown]
  - Aspiration [Unknown]
  - Fall [Unknown]
  - Lower limb fracture [Unknown]
  - Orthostatic hypotension [Unknown]
  - Dehydration [Unknown]
  - Dry mouth [Unknown]
  - Nausea [Unknown]
  - Vomiting [Unknown]
  - Mood altered [Unknown]
  - Nasal congestion [Unknown]
  - Dyspepsia [Unknown]
  - Dysarthria [Unknown]
  - Confusional state [Unknown]
  - Hand fracture [Unknown]
  - Diabetes mellitus [Unknown]
